FAERS Safety Report 9025013 (Version 1)
Quarter: 2013Q1

REPORT INFORMATION
  Report Type: Spontaneous
  Country: US (occurrence: US)
  Receive Date: 20130121
  Receipt Date: 20130121
  Transmission Date: 20140127
  Serious: Yes (Other)
  Sender: FDA-Public Use
  Company Number: PHEH2013US001128

PATIENT
  Sex: Female

DRUGS (3)
  1. DIOVAN [Suspect]
     Dosage: 80 MG,
  2. WELLBUTRIN [Concomitant]
  3. GABAPENTIN [Concomitant]

REACTIONS (2)
  - Multiple sclerosis [Unknown]
  - Visual impairment [Unknown]
